FAERS Safety Report 4560950-2 (Version None)
Quarter: 2005Q1

REPORT INFORMATION
  Report Type: 
  Country: None (occurrence: None)
  Receive Date: 20050126
  Receipt Date: 20040227
  Transmission Date: 20050727
  Serious: No
  Sender: FDA-Public Use
  Company Number: US-BRISTOL-MYERS SQUIBB COMPANY-12528048

PATIENT
  Sex: Female
  Weight: 100 kg

DRUGS (3)
  1. GLUCOPHAGE [Suspect]
     Indication: DIABETES MELLITUS
  2. VASOTEC [Concomitant]
  3. DIOVAN [Concomitant]

REACTIONS (1)
  - DRUG INEFFECTIVE [None]
